FAERS Safety Report 6126861-6 (Version None)
Quarter: 2009Q1

REPORT INFORMATION
  Report Type: 
  Country: None (occurrence: None)
  Receive Date: 20090320
  Receipt Date: 20090314
  Transmission Date: 20090719
  Serious: Yes (Death)
  Sender: FDA-Public Use
  Company Number: IN-GENENTECH-279299

PATIENT
  Age: 49 Year
  Sex: Male

DRUGS (1)
  1. ACTIVASE [Suspect]
     Indication: ISCHAEMIC STROKE
     Dosage: 20 MG, QD
     Route: 042
     Dates: start: 20090301, end: 20090301

REACTIONS (1)
  - DEATH [None]
